FAERS Safety Report 9783368 (Version 1)
Quarter: 2013Q4

REPORT INFORMATION
  Report Type: Spontaneous
  Country: US (occurrence: US)
  Receive Date: 20131226
  Receipt Date: 20131226
  Transmission Date: 20140711
  Serious: Yes (Hospitalization)
  Sender: FDA-Public Use
  Company Number: US-BAYER-2013-156699

PATIENT
  Age: 36 Year
  Sex: Female
  Weight: 121.54 kg

DRUGS (10)
  1. YASMIN [Suspect]
  2. HYDROCODONE [Concomitant]
  3. IBUPROFEN [Concomitant]
  4. FLUCONAZOL [Concomitant]
  5. ALPRAZOLAM [Concomitant]
     Indication: ANXIETY
  6. CEPHALEXIN [Concomitant]
  7. PREDNISONE [Concomitant]
  8. PROVERA [Concomitant]
  9. VICODIN [Concomitant]
  10. FLEXERIL [Concomitant]

REACTIONS (1)
  - Deep vein thrombosis [None]
